FAERS Safety Report 21803476 (Version 2)
Quarter: 2023Q1

REPORT INFORMATION
  Report Type: Report from Study
  Country: US (occurrence: US)
  Receive Date: 20230101
  Receipt Date: 20230222
  Transmission Date: 20230418
  Serious: Yes (Hospitalization, Other)
  Sender: FDA-Public Use
  Company Number: US-ABBVIE-4254304

PATIENT
  Sex: Female
  Weight: 54 kg

DRUGS (1)
  1. HUMIRA [Suspect]
     Active Substance: ADALIMUMAB
     Indication: Psoriasis
     Dosage: CF STRENGHT:40MG?START DATE TEXT: MORE THAN TWO YEARS AGO
     Route: 058

REACTIONS (9)
  - Upper limb fracture [Recovered/Resolved]
  - Product preparation error [Unknown]
  - Pain [Not Recovered/Not Resolved]
  - Pruritus [Not Recovered/Not Resolved]
  - Rotator cuff syndrome [Recovering/Resolving]
  - Neck surgery [Recovering/Resolving]
  - Tendon rupture [Recovering/Resolving]
  - Foot deformity [Unknown]
  - Inflammation [Not Recovered/Not Resolved]

NARRATIVE: CASE EVENT DATE: 20220101
